FAERS Safety Report 9056166 (Version 5)
Quarter: 2013Q3

REPORT INFORMATION
  Report Type: Spontaneous
  Country: US (occurrence: US)
  Receive Date: 20130205
  Receipt Date: 20130823
  Transmission Date: 20140515
  Serious: Yes (Hospitalization, Other)
  Sender: FDA-Public Use
  Company Number: US-009507513-1301USA007521

PATIENT
  Sex: Female

DRUGS (5)
  1. FOSAMAX [Suspect]
     Indication: OSTEOPENIA
     Dosage: 70 MG, QW
     Route: 048
     Dates: start: 200606, end: 200808
  2. FOSAMAX [Suspect]
     Indication: OSTEOPOROSIS PROPHYLAXIS
  3. ALENDRONATE SODIUM [Suspect]
     Indication: OSTEOPENIA
     Dosage: 70 MG, QW
     Route: 048
     Dates: start: 200808, end: 201107
  4. ALENDRONATE SODIUM [Suspect]
     Indication: OSTEOPOROSIS PROPHYLAXIS
  5. VITAMINS (UNSPECIFIED) [Concomitant]
     Indication: PRODUCT USED FOR UNKNOWN INDICATION
     Dosage: UNK, QD
     Dates: start: 1993

REACTIONS (48)
  - Femur fracture [Unknown]
  - Internal fixation of fracture [Unknown]
  - Hip arthroplasty [Unknown]
  - Spinal laminectomy [Unknown]
  - Femur fracture [Unknown]
  - Fracture nonunion [Unknown]
  - Periodontal disease [Unknown]
  - Dental operation [Unknown]
  - Periodontal operation [Unknown]
  - Fistula [Recovered/Resolved]
  - Tooth disorder [Unknown]
  - Stress fracture [Unknown]
  - Tendinous contracture [Unknown]
  - Joint contracture [Unknown]
  - Foot operation [Unknown]
  - Treatment noncompliance [Unknown]
  - Nasal congestion [Unknown]
  - Arthritis [Unknown]
  - Hypertension [Unknown]
  - Osteoporosis [Unknown]
  - Neuropathy peripheral [Unknown]
  - Visual acuity reduced [Unknown]
  - Sinusitis [Unknown]
  - Tonsillitis [Unknown]
  - Nail disorder [Unknown]
  - Polyuria [Unknown]
  - Hyperlipidaemia [Unknown]
  - Fracture nonunion [Unknown]
  - Foot fracture [Unknown]
  - Pain [Unknown]
  - Gingivectomy [Unknown]
  - Insomnia [Unknown]
  - Radiculopathy [Unknown]
  - Nocturia [Unknown]
  - Osteoarthritis [Unknown]
  - Irritable bowel syndrome [Unknown]
  - Cataract [Unknown]
  - Cataract operation [Unknown]
  - Meniere^s disease [Unknown]
  - Atypical fracture [Unknown]
  - Uterine dilation and curettage [Unknown]
  - Hysterectomy [Unknown]
  - Intervertebral disc degeneration [Unknown]
  - Osteoarthritis [Unknown]
  - Pain in extremity [Unknown]
  - Arthralgia [Unknown]
  - Constipation [Unknown]
  - Diarrhoea [Unknown]
